FAERS Safety Report 20171570 (Version 1)
Quarter: 2021Q4

REPORT INFORMATION
  Report Type: Spontaneous
  Country: CN (occurrence: CN)
  Receive Date: 20211210
  Receipt Date: 20211210
  Transmission Date: 20220303
  Serious: Yes (Other)
  Sender: FDA-Public Use
  Company Number: CN-PFIZER INC-202101699148

PATIENT
  Age: 43 Year
  Sex: Male

DRUGS (2)
  1. CYTARABINE [Suspect]
     Active Substance: CYTARABINE
     Indication: Full blood count decreased
     Dosage: 0.15 G, 1X/DAY
     Route: 041
     Dates: start: 20210926, end: 20211003
  2. CYTARABINE [Suspect]
     Active Substance: CYTARABINE
     Indication: Acute myeloid leukaemia

REACTIONS (2)
  - Myelosuppression [Not Recovered/Not Resolved]
  - Serratia bacteraemia [Unknown]

NARRATIVE: CASE EVENT DATE: 20210927
